FAERS Safety Report 25265838 (Version 1)
Quarter: 2025Q2

REPORT INFORMATION
  Report Type: Spontaneous
  Country: US (occurrence: US)
  Receive Date: 20250503
  Receipt Date: 20250503
  Transmission Date: 20250716
  Serious: Yes (Hospitalization, Other)
  Sender: MANKIND PHARMA
  Company Number: US-MankindUS-000376

PATIENT
  Age: 58 Year
  Sex: Female

DRUGS (9)
  1. VERAPAMIL HYDROCHLORIDE [Interacting]
     Active Substance: VERAPAMIL HYDROCHLORIDE
     Indication: Migraine prophylaxis
  2. PAXLOVID [Interacting]
     Active Substance: NIRMATRELVIR\RITONAVIR
     Indication: COVID-19
  3. SPIRONOLACTONE [Concomitant]
     Active Substance: SPIRONOLACTONE
  4. FUROSEMIDE [Concomitant]
     Active Substance: FUROSEMIDE
  5. LACTULOSE [Concomitant]
     Active Substance: LACTULOSE
  6. RIFAXIMIN [Concomitant]
     Active Substance: RIFAXIMIN
  7. METFORMIN [Concomitant]
     Active Substance: METFORMIN HYDROCHLORIDE
  8. HUMULIN R [Concomitant]
     Active Substance: INSULIN HUMAN
  9. VERAPAMIL HYDROCHLORIDE [Interacting]
     Active Substance: VERAPAMIL HYDROCHLORIDE
     Indication: Hypertension

REACTIONS (5)
  - Toxicity to various agents [Unknown]
  - Drug interaction [Unknown]
  - Atrioventricular block complete [Recovered/Resolved]
  - Hypotension [Recovered/Resolved]
  - Off label use [Unknown]
